FAERS Safety Report 10153726 (Version 1)
Quarter: 2014Q2

REPORT INFORMATION
  Report Type: Report from Study
  Country: US (occurrence: US)
  Receive Date: 20140506
  Receipt Date: 20140506
  Transmission Date: 20141212
  Serious: Yes (Hospitalization, Other)
  Sender: FDA-Public Use
  Company Number: US-ROCHE-1392717

PATIENT
  Age: 66 Year
  Sex: Female

DRUGS (4)
  1. TRASTUZUMAB [Suspect]
     Indication: BREAST CANCER
     Dosage: 4 MG/KG LOADING DOSE ON 10/SEP/2010 FOLLOWED BY 2 MG/KG WEEKLY FOR 18 WEEKS THEN 6 MG/KG EVERY 3 WEE
     Route: 042
     Dates: start: 20100910
  2. LAPATINIB [Suspect]
     Indication: BREAST CANCER
     Dosage: 750 MG PER DAY FROM 10/SEP/2010 FOR 18 WEEKS FOLLOWED BY 1000 MG PER DAY TO 30/JUN/2011
     Route: 048
     Dates: start: 20100910
  3. DOCETAXEL [Suspect]
     Indication: BREAST CANCER
     Dosage: 75 MG/M2 EVERY 3 WEEKS FOR 18 WEEKS
     Route: 042
     Dates: start: 20100910
  4. CARBOPLATIN [Suspect]
     Indication: BREAST CANCER
     Dosage: AUC6 EVERY 3 WEEKS FOR 18 WEEKS
     Route: 042
     Dates: start: 20100910

REACTIONS (5)
  - Hypokalaemia [Recovered/Resolved]
  - Dehydration [Recovered/Resolved]
  - Diarrhoea [Recovered/Resolved]
  - Alanine aminotransferase increased [Recovered/Resolved]
  - Aspartate aminotransferase increased [Recovered/Resolved]
